FAERS Safety Report 11733458 (Version 2)
Quarter: 2015Q4

REPORT INFORMATION
  Report Type: Spontaneous
  Country: DE (occurrence: DE)
  Receive Date: 20151113
  Receipt Date: 20151119
  Transmission Date: 20160304
  Serious: Yes (Hospitalization, Other)
  Sender: FDA-Public Use
  Company Number: DE-JNJFOC-20151112582

PATIENT
  Age: 47 Year
  Sex: Female
  Weight: 185 kg

DRUGS (2)
  1. XARELTO [Suspect]
     Active Substance: RIVAROXABAN
     Indication: EMBOLISM VENOUS
     Route: 048
  2. XARELTO [Suspect]
     Active Substance: RIVAROXABAN
     Indication: THROMBOSIS
     Route: 048

REACTIONS (6)
  - Shock haemorrhagic [Recovering/Resolving]
  - Post procedural haemorrhage [Recovering/Resolving]
  - Haemothorax [Recovering/Resolving]
  - Hypovolaemic shock [Unknown]
  - Circulatory collapse [Unknown]
  - Post procedural haematoma [Recovering/Resolving]

NARRATIVE: CASE EVENT DATE: 201507
